FAERS Safety Report 10356329 (Version 1)
Quarter: 2014Q3

REPORT INFORMATION
  Report Type: Spontaneous
  Country: BR (occurrence: BR)
  Receive Date: 20140801
  Receipt Date: 20140801
  Transmission Date: 20150326
  Serious: Yes (Other)
  Sender: FDA-Public Use
  Company Number: BR-ROCHE-1442649

PATIENT
  Age: 52 Year
  Sex: Female
  Weight: 58 kg

DRUGS (3)
  1. ALENIA (BRAZIL) [Concomitant]
     Active Substance: BUDESONIDE\FORMOTEROL FUMARATE
     Indication: ASTHMA
     Dosage: ADMINISTERED AT 6 AM
     Route: 065
  2. CLONAZEPAM. [Suspect]
     Active Substance: CLONAZEPAM
     Indication: ANXIETY
     Route: 065
  3. RIVOTRIL [Suspect]
     Active Substance: CLONAZEPAM
     Indication: ANXIETY
     Dosage: ADMINISTERED AT NIGHT AROUND 8 PM
     Route: 065
     Dates: start: 1994

REACTIONS (8)
  - Thyroid neoplasm [Not Recovered/Not Resolved]
  - Drug dependence [Unknown]
  - Hepatic cyst [Not Recovered/Not Resolved]
  - Lung cyst [Not Recovered/Not Resolved]
  - Amnesia [Not Recovered/Not Resolved]
  - Leiomyoma [Not Recovered/Not Resolved]
  - Uterine cyst [Not Recovered/Not Resolved]
  - Menstrual disorder [Recovering/Resolving]
